FAERS Safety Report 6599836-0 (Version None)
Quarter: 2010Q1

REPORT INFORMATION
  Report Type: 
  Country: None (occurrence: None)
  Receive Date: 20100217
  Receipt Date: 20100205
  Transmission Date: 20100710
  Serious: Yes (Other)
  Sender: FDA-Public Use
  Company Number: DSA_42569_2010

PATIENT
  Age: 52 Year
  Sex: Male

DRUGS (17)
  1. XENAZINE [Suspect]
     Indication: TOURETTE'S DISORDER
     Dosage: (50 MG BID)
     Dates: start: 20090427
  2. ATENOLOL [Concomitant]
  3. GLIPIZIDE [Concomitant]
  4. METFORMIN HYDROCHLORIDE [Concomitant]
  5. ENALAPRIL MALEATE [Concomitant]
  6. ALBUTEROL [Concomitant]
  7. COMBIVENT [Concomitant]
  8. ASPIRIN [Concomitant]
  9. DOCUSATE [Concomitant]
  10. PROTONIX /01263201/ [Concomitant]
  11. PROMETHAZINE [Concomitant]
  12. FLOMAX  /01280302/ [Concomitant]
  13. HYOSCYAMINE [Concomitant]
  14. NAPROXEN [Concomitant]
  15. ABILIFY [Concomitant]
  16. LEXAPRO [Concomitant]
  17. SEROQUEL [Concomitant]

REACTIONS (3)
  - AGGRESSION [None]
  - ANGER [None]
  - PERSONALITY CHANGE [None]
